FAERS Safety Report 7880108-9 (Version None)
Quarter: 2011Q4

REPORT INFORMATION
  Report Type: 
  Country: None (occurrence: None)
  Receive Date: 20111101
  Receipt Date: 20111028
  Transmission Date: 20120403
  Serious: Yes (Death, Hospitalization)
  Sender: FDA-Public Use
  Company Number: DK-ABBOTT-11P-044-0729525-00

PATIENT
  Sex: Male
  Weight: 76 kg

DRUGS (6)
  1. ALLOPURINOL [Concomitant]
     Indication: PRODUCT USED FOR UNKNOWN INDICATION
     Dates: start: 20110603
  2. TARGOCID [Concomitant]
     Indication: INFECTION
     Route: 042
     Dates: start: 20110604
  3. METHOTREXATE [Concomitant]
     Indication: PRODUCT USED FOR UNKNOWN INDICATION
     Route: 048
     Dates: start: 20070420, end: 20110407
  4. HUMIRA [Suspect]
     Indication: ANKYLOSING SPONDYLITIS
     Dates: start: 20070420, end: 20110407
  5. CERUBIDINE [Concomitant]
     Indication: PRODUCT USED FOR UNKNOWN INDICATION
     Dosage: USUAL DOSAGE NOS
     Dates: start: 20110603, end: 20110607
  6. ETOPOSIDE [Concomitant]
     Indication: PRODUCT USED FOR UNKNOWN INDICATION
     Dosage: USUAL DOSAGE NOS
     Dates: start: 20110603, end: 20110607

REACTIONS (5)
  - THROMBOCYTOPENIA [None]
  - CEREBRAL HAEMORRHAGE [None]
  - ACUTE PROMYELOCYTIC LEUKAEMIA [None]
  - BLOOD DISORDER [None]
  - CEREBELLAR HAEMORRHAGE [None]
